FAERS Safety Report 8418868-0 (Version None)
Quarter: 2012Q2

REPORT INFORMATION
  Report Type: 
  Country: None (occurrence: None)
  Receive Date: 20120607
  Receipt Date: 20120605
  Transmission Date: 20120825
  Serious: No
  Sender: FDA-Public Use
  Company Number: US-BAYER-2012-056237

PATIENT
  Age: 34 Year
  Sex: Female

DRUGS (2)
  1. CIPROFLOXACIN HCL [Suspect]
  2. AMBRISENTAN [Suspect]
     Indication: PRODUCT USED FOR UNKNOWN INDICATION
     Dosage: UNK
     Dates: start: 20070807

REACTIONS (7)
  - DIARRHOEA [None]
  - MALAISE [None]
  - TOOTH INFECTION [None]
  - WEIGHT INCREASED [None]
  - OEDEMA PERIPHERAL [None]
  - MENORRHAGIA [None]
  - ABDOMINAL DISCOMFORT [None]
